FAERS Safety Report 19963631 (Version 1)
Quarter: 2021Q4

REPORT INFORMATION
  Report Type: Spontaneous
  Country: US (occurrence: US)
  Receive Date: 20211018
  Receipt Date: 20211018
  Transmission Date: 20220303
  Serious: Yes (Other)
  Sender: FDA-Public Use
  Company Number: US-JNJFOC-20211029173

PATIENT
  Age: 61 Year
  Sex: Female

DRUGS (2)
  1. REMICADE [Suspect]
     Active Substance: INFLIXIMAB
     Indication: Colitis ulcerative
     Dosage: REMICADE 100 MG 5MG/KG Q 8 WEEKS
     Route: 042
     Dates: start: 20160316
  2. REMICADE [Suspect]
     Active Substance: INFLIXIMAB
     Dosage: REMICADE 100 MG 5MG/KG Q 6 WEEKS
     Route: 042
     Dates: start: 20160725

REACTIONS (7)
  - Colitis ulcerative [Recovering/Resolving]
  - Influenza like illness [Unknown]
  - Drug ineffective [Unknown]
  - Off label use [Unknown]
  - Product use issue [Unknown]
  - Headache [Unknown]
  - Irritable bowel syndrome [Recovering/Resolving]

NARRATIVE: CASE EVENT DATE: 20160101
